FAERS Safety Report 7071848-2 (Version None)
Quarter: 2010Q4

REPORT INFORMATION
  Report Type: 
  Country: None (occurrence: None)
  Receive Date: 20101029
  Receipt Date: 20091027
  Transmission Date: 20110411
  Serious: No
  Sender: FDA-Public Use
  Company Number: A0813630A

PATIENT
  Age: 53 Year
  Sex: Female

DRUGS (4)
  1. ADVAIR DISKUS 100/50 [Suspect]
     Dosage: 1PUFF TWICE PER DAY
     Route: 055
     Dates: start: 20000101, end: 20090401
  2. ADVAIR DISKUS 100/50 [Suspect]
     Dosage: 1PUFF TWICE PER DAY
     Route: 055
     Dates: start: 20090401, end: 20091026
  3. BLOOD PRESSURE MEDICATION [Concomitant]
  4. SINGULAIR [Concomitant]

REACTIONS (3)
  - CHEST DISCOMFORT [None]
  - DRUG INEFFECTIVE [None]
  - LOCAL SWELLING [None]
